FAERS Safety Report 25147937 (Version 1)
Quarter: 2025Q2

REPORT INFORMATION
  Report Type: Spontaneous
  Country: US (occurrence: US)
  Receive Date: 20250402
  Receipt Date: 20250402
  Transmission Date: 20250717
  Serious: No
  Sender: EMD SERONO INC
  Company Number: US-Merck Healthcare KGaA-2025015085

PATIENT
  Age: 65 Year
  Sex: Female

DRUGS (1)
  1. MAVENCLAD [Suspect]
     Active Substance: CLADRIBINE
     Indication: Multiple sclerosis
     Dates: start: 20250318, end: 20250322

REACTIONS (3)
  - Myalgia [Unknown]
  - Headache [Unknown]
  - Burning sensation [Unknown]

NARRATIVE: CASE EVENT DATE: 20250319
